FAERS Safety Report 4768795-5 (Version None)
Quarter: 2005Q3

REPORT INFORMATION
  Report Type: 
  Country: None (occurrence: None)
  Receive Date: 20050914
  Receipt Date: 20050902
  Transmission Date: 20060218
  Serious: Yes (Other)
  Sender: FDA-Public Use
  Company Number: 200511485BWH

PATIENT
  Age: 33 Year
  Sex: Female

DRUGS (10)
  1. LEVITRA [Suspect]
     Dosage: 10 MG, ONCE, ORAL
     Route: 048
     Dates: start: 20050720
  2. GABITRIL [Concomitant]
  3. REGLAN [Concomitant]
  4. SEROQUEL [Concomitant]
  5. REMERON [Concomitant]
  6. PAXIL [Concomitant]
  7. LUNESTA [Concomitant]
  8. REPREXAIN [Concomitant]
  9. DOXYCYCLINE [Concomitant]
  10. ACETAMINOPHEN AND HYDROCODONE BITARTRATE [Concomitant]

REACTIONS (6)
  - ANXIETY [None]
  - CHEST PAIN [None]
  - CRYING [None]
  - HYPERTENSION [None]
  - INTENTIONAL MISUSE [None]
  - PANIC ATTACK [None]
